FAERS Safety Report 7305826-2 (Version None)
Quarter: 2011Q1

REPORT INFORMATION
  Report Type: 
  Country: None (occurrence: None)
  Receive Date: 20110209
  Receipt Date: 20110127
  Transmission Date: 20110831
  Serious: Yes (Death, Life-Threatening, Other)
  Sender: FDA-Public Use
  Company Number: 2011AP000065

PATIENT
  Age: 19 Year
  Sex: Female

DRUGS (4)
  1. VENLAFAXINE [Suspect]
     Indication: MAJOR DEPRESSION
     Dosage: 225 MG
  2. RISPERIDONE [Suspect]
     Indication: PSYCHOTIC DISORDER
     Dosage: 5 MG ; 1 MG;BID ; 3 MG;QD ; 2 MG
  3. NORTRIPTYLINE (NORTRIPTYLINE) [Suspect]
     Dosage: 100 MG;HS
  4. OLANZAPINE [Suspect]
     Indication: PSYCHOTIC DISORDER
     Dosage: 10 MG ; 5 MG;QD

REACTIONS (16)
  - HYPERPROLACTINAEMIA [None]
  - FRUSTRATION [None]
  - HYPOTENSION [None]
  - AMENORRHOEA [None]
  - LOSS OF CONSCIOUSNESS [None]
  - PULMONARY EMBOLISM [None]
  - SUICIDAL IDEATION [None]
  - DIET REFUSAL [None]
  - WEIGHT INCREASED [None]
  - PSYCHOTIC DISORDER [None]
  - MYDRIASIS [None]
  - SOCIAL AVOIDANT BEHAVIOUR [None]
  - ANHEDONIA [None]
  - HYPOVENTILATION [None]
  - RESPIRATORY ARREST [None]
  - MULTIPLE DRUG OVERDOSE [None]
